FAERS Safety Report 5097123-3 (Version None)
Quarter: 2006Q3

REPORT INFORMATION
  Report Type: 
  Country: None (occurrence: None)
  Receive Date: 20060901
  Receipt Date: 20060821
  Transmission Date: 20061208
  Serious: Yes (Hospitalization)
  Sender: FDA-Public Use
  Company Number: 2006PV019857

PATIENT
  Age: 63 Year
  Sex: Female
  Weight: 111.1313 kg

DRUGS (7)
  1. BYETTA [Suspect]
     Indication: DIABETES MELLITUS NON-INSULIN-DEPENDENT
     Dosage: 5  MCG; BID; SC
     Route: 058
     Dates: start: 20060724, end: 20060731
  2. ACTOS [Concomitant]
  3. METFORMIN [Concomitant]
  4. GLYBURIDE [Concomitant]
  5. HYDROCHLOROTHIAZIDE [Concomitant]
  6. UNKNOWN DIURETIC [Concomitant]
  7. LISINOPRIL [Concomitant]

REACTIONS (5)
  - DIALYSIS [None]
  - DIARRHOEA [None]
  - NAUSEA [None]
  - RENAL FAILURE ACUTE [None]
  - VOMITING [None]
